FAERS Safety Report 7878216-1 (Version None)
Quarter: 2011Q4

REPORT INFORMATION
  Report Type: 
  Country: None (occurrence: None)
  Receive Date: 20111101
  Receipt Date: 20111024
  Transmission Date: 20120403
  Serious: No
  Sender: FDA-Public Use
  Company Number: US-BIOGENIDEC-2011BI040480

PATIENT
  Sex: Female

DRUGS (4)
  1. PREVAGEN [Concomitant]
     Indication: GAIT DISTURBANCE
     Dates: start: 20101201, end: 20110901
  2. AVONEX [Suspect]
     Route: 030
     Dates: end: 20110921
  3. AVONEX [Suspect]
     Indication: MULTIPLE SCLEROSIS
     Route: 030
     Dates: start: 19960101
  4. PREVAGEN [Concomitant]
     Indication: BALANCE DISORDER
     Dates: start: 20101201, end: 20110901

REACTIONS (2)
  - BALANCE DISORDER [None]
  - GAIT DISTURBANCE [None]
